FAERS Safety Report 8263442-2 (Version None)
Quarter: 2012Q1

REPORT INFORMATION
  Report Type: 
  Country: None (occurrence: None)
  Receive Date: 20120327
  Receipt Date: 20110425
  Transmission Date: 20120608
  Serious: Yes (Other)
  Sender: FDA-Public Use
  Company Number: PHHY2011US35243

PATIENT
  Age: 26 Year
  Sex: Male

DRUGS (1)
  1. GLEEVEC [Suspect]
     Indication: CHRONIC MYELOID LEUKAEMIA
     Dosage: 400 MG, DAILY, ORAL
     Dates: start: 20100609, end: 20110419

REACTIONS (4)
  - BONE PAIN [None]
  - NAUSEA [None]
  - HAEMATEMESIS [None]
  - ARTHRALGIA [None]
